FAERS Safety Report 10249042 (Version 1)
Quarter: 2014Q2

REPORT INFORMATION
  Report Type: Spontaneous
  Country: US (occurrence: None)
  Receive Date: 20140618
  Receipt Date: 20140618
  Transmission Date: 20141212
  Serious: Yes (Hospitalization)
  Sender: FDA-Public Use
  Company Number: None

PATIENT
  Age: 81 Year
  Sex: Male
  Weight: 87.7 kg

DRUGS (2)
  1. 5-FLUOROURACIL [Suspect]
  2. OXALIPLATIN [Suspect]

REACTIONS (6)
  - Mucosal inflammation [None]
  - Decreased appetite [None]
  - Nausea [None]
  - Vomiting [None]
  - Diarrhoea [None]
  - Dysphagia [None]
